FAERS Safety Report 8737345 (Version 2)
Quarter: 2013Q4

REPORT INFORMATION
  Report Type: Spontaneous
  Country: JP (occurrence: JP)
  Receive Date: 20120822
  Receipt Date: 20131101
  Transmission Date: 20140711
  Serious: Yes (Hospitalization, Other)
  Sender: FDA-Public Use
  Company Number: JP-009507513-1208JPN006989

PATIENT
  Age: 23 Year
  Sex: Female

DRUGS (4)
  1. REMERON [Suspect]
     Route: 048
  2. DEPAS [Concomitant]
     Route: 048
  3. ANAFRANIL [Concomitant]
     Route: 048
  4. [THERAPY UNSPECIFIED] [Concomitant]
     Route: 065

REACTIONS (2)
  - Convulsion [Unknown]
  - Overdose [Unknown]
